FAERS Safety Report 6571250-3 (Version None)
Quarter: 2010Q1

REPORT INFORMATION
  Report Type: 
  Country: None (occurrence: None)
  Receive Date: 20100129
  Receipt Date: 20100113
  Transmission Date: 20100710
  Serious: Yes (Death, Hospitalization)
  Sender: FDA-Public Use
  Company Number: 2008AL001724

PATIENT
  Age: 65 Year
  Sex: Male

DRUGS (3)
  1. SPIRONOLACTONE        TABLETS USP [Suspect]
     Indication: CARDIAC FAILURE CONGESTIVE
  2. CLOZARIL [Concomitant]
  3. STELAZINE [Concomitant]

REACTIONS (13)
  - ATRIAL FIBRILLATION [None]
  - CARDIAC FAILURE CONGESTIVE [None]
  - CARDIOMEGALY [None]
  - CHRONIC OBSTRUCTIVE PULMONARY DISEASE [None]
  - DIABETES MELLITUS INADEQUATE CONTROL [None]
  - FALL [None]
  - HYPOTENSION [None]
  - LOWER RESPIRATORY TRACT INFECTION [None]
  - MALAISE [None]
  - MYOCARDIAL INFARCTION [None]
  - MYOCLONUS [None]
  - PNEUMONIA [None]
  - SYNCOPE [None]
